FAERS Safety Report 7927950-3 (Version None)
Quarter: 2011Q4

REPORT INFORMATION
  Report Type: 
  Country: None (occurrence: None)
  Receive Date: 20111118
  Receipt Date: 20111115
  Transmission Date: 20120403
  Serious: Yes (Congenital Anomaly, Other)
  Sender: FDA-Public Use
  Company Number: US-PFIZER INC-2011274679

PATIENT

DRUGS (3)
  1. ZOLOFT [Suspect]
     Dosage: 50 MG, UNK
     Route: 064
  2. ALBUTEROL [Concomitant]
     Indication: ASTHMA
     Dosage: AS NEEDED. UNK
     Route: 064
  3. MULTI-VITAMINS [Concomitant]
     Route: 064

REACTIONS (2)
  - TRANSPOSITION OF THE GREAT VESSELS [None]
  - MATERNAL EXPOSURE TIMING UNSPECIFIED [None]
